FAERS Safety Report 9474665 (Version 1)
Quarter: 2013Q3

REPORT INFORMATION
  Report Type: Spontaneous
  Country: DE (occurrence: DE)
  Receive Date: 20130823
  Receipt Date: 20130823
  Transmission Date: 20140515
  Serious: Yes (Other)
  Sender: FDA-Public Use
  Company Number: DE-TEVA-427063GER

PATIENT
  Age: 73 Year
  Sex: Male
  Weight: 96 kg

DRUGS (6)
  1. DOXYCYCLIN [Suspect]
     Indication: MYOSITIS
     Route: 048
     Dates: start: 20121012, end: 201301
  2. ACETAZOLAMIDE [Suspect]
     Indication: GLAUCOMA
     Dates: start: 20121012, end: 201301
  3. CANDESARTAN [Concomitant]
     Indication: HYPERTENSION
     Dosage: 32 MILLIGRAM DAILY;
     Route: 048
     Dates: start: 2011
  4. ASS [Concomitant]
     Dosage: 200 MILLIGRAM DAILY;
     Route: 048
  5. TAFLUPROST [Concomitant]
     Indication: OPEN ANGLE GLAUCOMA
     Route: 047
  6. PREDNISOLON [Concomitant]
     Indication: MYOSITIS
     Dosage: 50 MILLIGRAM DAILY;
     Route: 048
     Dates: start: 20121012

REACTIONS (1)
  - Pancytopenia [Not Recovered/Not Resolved]
